FAERS Safety Report 19798841 (Version 3)
Quarter: 2021Q4

REPORT INFORMATION
  Report Type: Spontaneous
  Country: GB (occurrence: GB)
  Receive Date: 20210907
  Receipt Date: 20211013
  Transmission Date: 20220303
  Serious: Yes (Death, Other)
  Sender: FDA-Public Use
  Company Number: None

PATIENT
  Age: 44 Year
  Sex: Female

DRUGS (3)
  1. SERTRALINE [Suspect]
     Active Substance: SERTRALINE HYDROCHLORIDE
     Indication: Product used for unknown indication
     Dosage: THERAPEUTIC LEVELS OF SERTRALINE AND DIPHENHYDRAMINE
     Route: 065
  2. COCAINE [Suspect]
     Active Substance: COCAINE
     Indication: Product used for unknown indication
     Dosage: RECREATIONAL LEVELS OF COCAINE
     Route: 065
  3. NYTOL [Suspect]
     Active Substance: DIPHENHYDRAMINE HYDROCHLORIDE
     Indication: Product used for unknown indication
     Dosage: THERAPEUTIC LEVELS OF SERTRALINE AND DIPHENHYDRAMINE
     Route: 065

REACTIONS (3)
  - Skull fracture [Fatal]
  - Brain injury [Fatal]
  - Fall [Unknown]
